FAERS Safety Report 14715416 (Version 2)
Quarter: 2018Q3

REPORT INFORMATION
  Report Type: Report from Study
  Country: BR (occurrence: BR)
  Receive Date: 20180404
  Receipt Date: 20180730
  Transmission Date: 20181010
  Serious: Yes (Other)
  Sender: FDA-Public Use
  Company Number: BR-JNJFOC-20180402561

PATIENT
  Age: 34 Year
  Sex: Female
  Weight: 81 kg

DRUGS (2)
  1. PURAN [Concomitant]
     Active Substance: LEVOTHYROXINE SODIUM
     Route: 065
  2. SIMPONI [Suspect]
     Active Substance: GOLIMUMAB
     Indication: RHEUMATOID ARTHRITIS
     Route: 058
     Dates: start: 20131219

REACTIONS (1)
  - Chikungunya virus infection [Not Recovered/Not Resolved]

NARRATIVE: CASE EVENT DATE: 201801
